FAERS Safety Report 7555604-4 (Version None)
Quarter: 2011Q2

REPORT INFORMATION
  Report Type: 
  Country: None (occurrence: None)
  Receive Date: 20110617
  Receipt Date: 20010514
  Transmission Date: 20111010
  Serious: Yes (Hospitalization)
  Sender: FDA-Public Use
  Company Number: PHEH2001US02655

PATIENT
  Sex: Male

DRUGS (6)
  1. REMERON [Concomitant]
  2. ASPIRIN [Concomitant]
  3. ATENOLOL [Concomitant]
  4. NIACIN [Concomitant]
     Dosage: UNK, UNK
  5. EXELON [Suspect]
     Indication: DEMENTIA ALZHEIMER'S TYPE
     Dosage: 6 MG, BID
     Route: 048
     Dates: start: 20000510
  6. ZYPREXA [Concomitant]

REACTIONS (2)
  - PNEUMONIA [None]
  - JOINT SPRAIN [None]
